FAERS Safety Report 11181035 (Version 1)
Quarter: 2015Q2

REPORT INFORMATION
  Report Type: Spontaneous
  Country: US (occurrence: US)
  Receive Date: 20150611
  Receipt Date: 20150611
  Transmission Date: 20150821
  Serious: No
  Sender: FDA-Public Use
  Company Number: US-BAYER-2015-327707

PATIENT
  Age: 56 Year
  Sex: Male
  Weight: 93 kg

DRUGS (1)
  1. ALEVE [Suspect]
     Active Substance: NAPROXEN SODIUM
     Indication: ARTHRITIS
     Dosage: 2 DF, ONCE
     Route: 048
     Dates: start: 20150524, end: 20150524

REACTIONS (3)
  - Headache [Recovered/Resolved]
  - Palpitations [Recovered/Resolved]
  - Product use issue [None]

NARRATIVE: CASE EVENT DATE: 20150524
